FAERS Safety Report 8916722 (Version 1)
Quarter: 2012Q4

REPORT INFORMATION
  Report Type: 
  Country: US (occurrence: US)
  Receive Date: 20121120
  Receipt Date: 20121120
  Transmission Date: 20130627
  Serious: Yes (Hospitalization)
  Sender: FDA-Public Use
  Company Number: US-BAYER-2012-119043

PATIENT
  Age: 29 Year
  Sex: Female
  Weight: 71.66 kg

DRUGS (8)
  1. YAZ [Suspect]
  2. GIANVI [Suspect]
     Indication: BIRTH CONTROL
  3. TYPHOID VACCINE [Concomitant]
     Dosage: UNK
     Dates: start: 201201
  4. YELLOW FEVER VACCINE [Concomitant]
     Dosage: UNK
     Route: 058
     Dates: start: 201201
  5. POLIOVIRUS VACCINE [Concomitant]
     Dosage: UNK
     Route: 058
     Dates: start: 201201
  6. HEPATITIS A VACCINE [Concomitant]
     Dosage: UNK
     Route: 030
     Dates: start: 201201
  7. HEPATITIS B VACCINE [Concomitant]
     Dosage: UNK
     Route: 030
     Dates: start: 201201
  8. CELEBREX [Concomitant]

REACTIONS (1)
  - Pulmonary embolism [None]
